FAERS Safety Report 5364113-2 (Version None)
Quarter: 2007Q2

REPORT INFORMATION
  Report Type: 
  Country: None (occurrence: None)
  Receive Date: 20070530
  Receipt Date: 20070103
  Transmission Date: 20071010
  Serious: No
  Sender: FDA-Public Use
  Company Number: 2007PV027757

PATIENT
  Age: 80 Year
  Sex: Male
  Weight: 129.2752 kg

DRUGS (4)
  1. BYETTA [Suspect]
     Indication: DIABETES MELLITUS
     Dosage: 5 MCG;BID;SC   5 MCG;QD;SC
     Route: 058
     Dates: start: 20061101, end: 20061201
  2. BYETTA [Suspect]
     Indication: DIABETES MELLITUS
     Dosage: 5 MCG;BID;SC   5 MCG;QD;SC
     Route: 058
     Dates: start: 20061201
  3. HUMALOG [Concomitant]
  4. LANTUS [Concomitant]

REACTIONS (1)
  - HEADACHE [None]
